FAERS Safety Report 6670862-6 (Version None)
Quarter: 2010Q2

REPORT INFORMATION
  Report Type: 
  Country: None (occurrence: None)
  Receive Date: 20100407
  Receipt Date: 20100331
  Transmission Date: 20101027
  Serious: Yes (Hospitalization)
  Sender: FDA-Public Use
  Company Number: FR-BRISTOL-MYERS SQUIBB COMPANY-15046881

PATIENT
  Age: 39 Year
  Sex: Male

DRUGS (8)
  1. BRISTOPEN CAPS 500 MG [Suspect]
     Dates: start: 20100129, end: 20100206
  2. UROMITEXAN [Suspect]
     Indication: LIPOSARCOMA
     Dosage: ALSO ON 13-JAN-2010
     Route: 042
     Dates: start: 20091221
  3. HOLOXAN [Suspect]
     Indication: LIPOSARCOMA
     Dosage: ALSO ON 13JAN2010
     Dates: start: 20091221
  4. ADRIBLASTINE [Suspect]
     Indication: LIPOSARCOMA
     Dates: start: 20091221, end: 20100111
  5. INNOHEP [Concomitant]
     Indication: JUGULAR VEIN THROMBOSIS
     Dosage: ALSO RECEIVED ON 15FEB2010
     Route: 058
     Dates: start: 20100128
  6. IXPRIM [Concomitant]
  7. GURONSAN [Concomitant]
     Dates: start: 20100201
  8. CELESTENE [Concomitant]
     Indication: PREMEDICATION
     Dosage: FROM DAY-1 TO DAY 3

REACTIONS (1)
  - CYTOLYTIC HEPATITIS [None]
